FAERS Safety Report 15231926 (Version 1)
Quarter: 2018Q4

REPORT INFORMATION
  Report Type: Spontaneous
  Country: DE (occurrence: DE)
  Receive Date: 20180802
  Receipt Date: 20180802
  Transmission Date: 20190204
  Serious: Yes (Hospitalization)
  Sender: FDA-Public Use
  Company Number: DE-HIKMA PHARMACEUTICALS USA INC.-DE-H14001-18-00356

PATIENT
  Age: 80 Year
  Sex: Female
  Weight: 83 kg

DRUGS (29)
  1. AVELUMAB [Suspect]
     Active Substance: AVELUMAB
     Route: 042
     Dates: start: 20171208, end: 20171208
  2. EMEND [Concomitant]
     Active Substance: APREPITANT
     Indication: PROPHYLAXIS
     Route: 048
     Dates: start: 20171229, end: 20171230
  3. PANTOPRAZOLE [Concomitant]
     Active Substance: PANTOPRAZOLE
     Indication: PROPHYLAXIS
     Route: 048
     Dates: start: 20180105
  4. PACLITAXEL. [Suspect]
     Active Substance: PACLITAXEL
     Indication: PRODUCT USED FOR UNKNOWN INDICATION
     Route: 042
     Dates: start: 20171116, end: 20171116
  5. PACLITAXEL. [Suspect]
     Active Substance: PACLITAXEL
     Route: 042
     Dates: start: 20171207, end: 20171207
  6. L-THYROXIN [Concomitant]
     Active Substance: LEVOTHYROXINE SODIUM
     Indication: GOITRE
     Route: 048
     Dates: start: 1997
  7. CLEXANE [Concomitant]
     Active Substance: ENOXAPARIN SODIUM
     Indication: PROPHYLAXIS
     Route: 058
     Dates: start: 20180103
  8. ATORVASTATIN [Concomitant]
     Active Substance: ATORVASTATIN
     Indication: CARDIAC FAILURE
     Route: 065
     Dates: start: 1997
  9. TRAMADOL. [Concomitant]
     Active Substance: TRAMADOL
     Indication: SPINAL DISORDER
     Route: 048
     Dates: start: 1997
  10. ASS PROTECT [Concomitant]
     Indication: CARDIAC FAILURE
     Route: 048
     Dates: start: 1997
  11. DEXAMETHASONE. [Concomitant]
     Active Substance: DEXAMETHASONE
     Indication: PROPHYLAXIS
     Route: 042
     Dates: start: 20171228, end: 20171228
  12. CARVEDILOL. [Concomitant]
     Active Substance: CARVEDILOL
     Indication: CARDIAC FAILURE
     Route: 048
     Dates: start: 1997
  13. DEXAMETHASONE. [Concomitant]
     Active Substance: DEXAMETHASONE
     Indication: PREMEDICATION
     Route: 048
     Dates: start: 20171229, end: 20171230
  14. CLEMASTINE [Concomitant]
     Active Substance: CLEMASTINE
     Indication: PREMEDICATION
     Route: 042
     Dates: start: 20171228, end: 20171228
  15. PERFALGAN [Concomitant]
     Active Substance: ACETAMINOPHEN
     Indication: PREMEDICATION
     Route: 042
     Dates: start: 20171229, end: 20171229
  16. AVELUMAB [Suspect]
     Active Substance: AVELUMAB
     Indication: PRODUCT USED FOR UNKNOWN INDICATION
     Route: 042
     Dates: start: 20171117, end: 20171117
  17. RANITIDIN [Concomitant]
     Active Substance: RANITIDINE HYDROCHLORIDE
     Indication: PREMEDICATION
     Route: 042
     Dates: start: 20171228, end: 20171228
  18. PANTOPRAZOLE [Concomitant]
     Active Substance: PANTOPRAZOLE
     Indication: NAUSEA
     Route: 042
     Dates: start: 20180103, end: 20180104
  19. CARBOPLATIN. [Suspect]
     Active Substance: CARBOPLATIN
     Route: 042
     Dates: start: 20171208, end: 20171208
  20. AVELUMAB [Suspect]
     Active Substance: AVELUMAB
     Route: 042
     Dates: start: 20171229, end: 20171229
  21. PARACETAMOL [Concomitant]
     Active Substance: ACETAMINOPHEN
     Indication: PROPHYLAXIS
     Route: 048
     Dates: start: 20171229, end: 20171230
  22. VOMEX [Concomitant]
     Active Substance: DIMENHYDRINATE
     Indication: VOMITING
     Route: 065
  23. VOMEX [Concomitant]
     Active Substance: DIMENHYDRINATE
     Indication: NAUSEA
     Route: 042
     Dates: start: 20180103, end: 20180103
  24. ONDANSETRON [Concomitant]
     Active Substance: ONDANSETRON
     Indication: VOMITING
     Route: 048
     Dates: start: 20171229
  25. ENTRESTO [Concomitant]
     Active Substance: SACUBITRIL\VALSARTAN
     Indication: CARDIAC FAILURE
     Route: 048
     Dates: start: 201708
  26. CARBOPLATIN. [Suspect]
     Active Substance: CARBOPLATIN
     Indication: PRODUCT USED FOR UNKNOWN INDICATION
     Route: 042
     Dates: start: 20171116, end: 20171116
  27. CARBOPLATIN. [Suspect]
     Active Substance: CARBOPLATIN
     Route: 042
     Dates: start: 20171228, end: 20171228
  28. PACLITAXEL. [Suspect]
     Active Substance: PACLITAXEL
     Route: 042
     Dates: start: 20171228, end: 20171228
  29. SPIRONOLACTON [Concomitant]
     Active Substance: SPIRONOLACTONE
     Indication: CARDIAC FAILURE
     Route: 048
     Dates: start: 1997

REACTIONS (3)
  - Decreased appetite [Recovered/Resolved]
  - General physical health deterioration [Recovered/Resolved]
  - Fatigue [Recovered/Resolved]

NARRATIVE: CASE EVENT DATE: 20180103
